FAERS Safety Report 5400075-7 (Version None)
Quarter: 2007Q3

REPORT INFORMATION
  Report Type: 
  Country: None (occurrence: None)
  Receive Date: 20070726
  Receipt Date: 20070726
  Transmission Date: 20080115
  Serious: Yes (Hospitalization)
  Sender: FDA-Public Use
  Company Number: None

PATIENT
  Sex: Female

DRUGS (8)
  1. REVLIMID [Suspect]
     Indication: MULTIPLE MYELOMA
     Dosage: 25MG DAILY 21D/28D PO
     Route: 048
  2. DEXAMETHASONE 4MG TAB [Suspect]
     Indication: MULTIPLE MYELOMA
     Dosage: 40MG ONCE A WEEK PO
     Route: 048
  3. FENTANYL TRANSDERMAL SYSTEM [Concomitant]
  4. HYDROMORPHINE [Concomitant]
  5. LISINOPRIL [Concomitant]
  6. OMEPRAZOLE [Concomitant]
  7. TEMAZEPAM [Concomitant]
  8. ALLOPURINOL [Concomitant]

REACTIONS (6)
  - LIGHT CHAIN ANALYSIS ABNORMAL [None]
  - NEPHROPATHY [None]
  - PAIN [None]
  - PANCYTOPENIA [None]
  - RENAL FAILURE ACUTE [None]
  - THERAPEUTIC RESPONSE DECREASED [None]
